FAERS Safety Report 6512495-8 (Version None)
Quarter: 2009Q4

REPORT INFORMATION
  Report Type: 
  Country: None (occurrence: None)
  Receive Date: 20091222
  Receipt Date: 20091215
  Transmission Date: 20100525
  Serious: Yes (Hospitalization, Other)
  Sender: FDA-Public Use
  Company Number: US-AMGEN-QUU350692

PATIENT
  Sex: Female
  Weight: 71.7 kg

DRUGS (15)
  1. ENBREL [Suspect]
     Indication: PSORIATIC ARTHROPATHY
     Route: 058
  2. ENBREL [Suspect]
     Indication: PSORIASIS
  3. PRISTIQ [Concomitant]
     Route: 048
  4. ULTRAM [Concomitant]
     Route: 048
  5. AMITRIPTYLINE HYDROCHLORIDE [Concomitant]
     Route: 048
  6. AMBIEN [Concomitant]
     Route: 048
  7. CITRACAL [Concomitant]
     Route: 048
  8. MELATONIN [Concomitant]
     Route: 048
  9. DHEA [Concomitant]
     Route: 048
  10. WELLBUTRIN [Concomitant]
     Route: 048
  11. LOVAZA [Concomitant]
     Route: 048
  12. SOMA [Concomitant]
     Route: 048
  13. HYDROXYZINE [Concomitant]
     Route: 048
  14. KLONOPIN [Concomitant]
  15. EVISTA [Concomitant]

REACTIONS (23)
  - ANXIETY [None]
  - ARTHRALGIA [None]
  - CARPAL TUNNEL DECOMPRESSION [None]
  - CERVIX CARCINOMA [None]
  - DRUG INEFFECTIVE [None]
  - ENDOMETRIOSIS [None]
  - EXOSTOSIS [None]
  - FIBROMYALGIA [None]
  - HOT FLUSH [None]
  - HYPOAESTHESIA [None]
  - INTERVERTEBRAL DISC PROTRUSION [None]
  - JOINT INSTABILITY [None]
  - JOINT SPRAIN [None]
  - MEMORY IMPAIRMENT [None]
  - MENISCUS LESION [None]
  - OPEN WOUND [None]
  - OSTEOPOROSIS [None]
  - OVARIAN MASS [None]
  - PARAESTHESIA [None]
  - PITUITARY TUMOUR [None]
  - PROCEDURAL PAIN [None]
  - PSORIATIC ARTHROPATHY [None]
  - SCIATICA [None]
